FAERS Safety Report 9333167 (Version 3)
Quarter: 2013Q3

REPORT INFORMATION
  Report Type: Spontaneous
  Country: US (occurrence: US)
  Receive Date: 20130606
  Receipt Date: 20130710
  Transmission Date: 20140515
  Serious: Yes (Death, Other)
  Sender: FDA-Public Use
  Company Number: US-BAXTER-2013BAX020152

PATIENT
  Age: 74 Year
  Sex: Male

DRUGS (2)
  1. DIANEAL LOW CALCIUM [Suspect]
     Indication: PERITONEAL DIALYSIS
     Route: 033
     Dates: start: 20130501, end: 20130525
  2. DIANEAL LOW CALCIUM [Suspect]
     Indication: PERITONEAL DIALYSIS
     Route: 033
     Dates: start: 20130501, end: 20130525

REACTIONS (6)
  - Cardiac failure congestive [Fatal]
  - Respiratory arrest [Fatal]
  - Peritonitis bacterial [Fatal]
  - Fluid overload [Fatal]
  - Malaise [Unknown]
  - Hypertension [Unknown]
